FAERS Safety Report 9428834 (Version 1)
Quarter: 2013Q3

REPORT INFORMATION
  Report Type: Spontaneous
  Country: US (occurrence: US)
  Receive Date: 20130730
  Receipt Date: 20130730
  Transmission Date: 20140515
  Serious: No
  Sender: FDA-Public Use
  Company Number: US-ABBOTT-12P-163-1023856-00

PATIENT
  Age: 51 Year
  Sex: Female
  Weight: 68.1 kg

DRUGS (6)
  1. NIASPAN (COATED) [Suspect]
     Indication: PRODUCT USED FOR UNKNOWN INDICATION
     Route: 048
     Dates: start: 20121111, end: 20121211
  2. NIASPAN (COATED) [Suspect]
     Route: 048
     Dates: start: 20121211
  3. REBIF [Concomitant]
     Indication: MULTIPLE SCLEROSIS
  4. DETROL [Concomitant]
     Indication: PRODUCT USED FOR UNKNOWN INDICATION
  5. ALPRAZOLAM [Concomitant]
     Indication: ANXIETY
  6. CITALOPRAM [Concomitant]
     Indication: DEPRESSION

REACTIONS (2)
  - Palpitations [Recovered/Resolved]
  - Flushing [Recovered/Resolved]
